FAERS Safety Report 5794270-5 (Version None)
Quarter: 2008Q2

REPORT INFORMATION
  Report Type: 
  Country: None (occurrence: None)
  Receive Date: 20080627
  Receipt Date: 20080620
  Transmission Date: 20081010
  Serious: Yes (Hospitalization)
  Sender: FDA-Public Use
  Company Number: BE-PFIZER INC-2008051824

PATIENT
  Sex: Female
  Weight: 78 kg

DRUGS (1)
  1. LIPITOR [Suspect]
     Dosage: DAILY DOSE:20MG
     Route: 048
     Dates: start: 20080315, end: 20080501

REACTIONS (1)
  - HEPATOTOXICITY [None]
